FAERS Safety Report 4305524-3 (Version None)
Quarter: 2004Q1

REPORT INFORMATION
  Report Type: 
  Country: None (occurrence: None)
  Receive Date: 20040226
  Receipt Date: 20031113
  Transmission Date: 20041129
  Serious: No
  Sender: FDA-Public Use
  Company Number: US-BRISTOL-MYERS SQUIBB COMPANY-12434643

PATIENT
  Age: 49 Year
  Sex: Male
  Weight: 86 kg

DRUGS (4)
  1. ABILIFY [Suspect]
     Indication: SCHIZOPHRENIA
     Route: 048
     Dates: start: 20031101
  2. KLONOPIN [Concomitant]
  3. LOTENSIN [Concomitant]
  4. ZYPREXA [Concomitant]
     Dosage: DOSE DECREASED TO 5 MG ON 12-NOV-2003.  PATIENT IS WEANING OFF.

REACTIONS (4)
  - BLOOD PRESSURE INCREASED [None]
  - ERECTILE DYSFUNCTION [None]
  - EUPHORIC MOOD [None]
  - INSOMNIA [None]
